FAERS Safety Report 11471013 (Version 2)
Quarter: 2015Q3

REPORT INFORMATION
  Report Type: Spontaneous
  Country: US (occurrence: US)
  Receive Date: 20150903
  Receipt Date: 20150903
  Transmission Date: 20151125
  Serious: No
  Sender: FDA-Public Use
  Company Number: US-ELI_LILLY_AND_COMPANY-US201109005892

PATIENT
  Sex: Male

DRUGS (4)
  1. CYMBALTA [Suspect]
     Active Substance: DULOXETINE HYDROCHLORIDE
     Indication: DIABETIC NEUROPATHY
     Dosage: 60 MG, QD
     Dates: start: 2009
  2. CYMBALTA [Suspect]
     Active Substance: DULOXETINE HYDROCHLORIDE
     Dosage: 120 MG, QD
  3. BYETTA [Concomitant]
     Active Substance: EXENATIDE
     Dosage: 10 MG, UNK
  4. BYETTA [Concomitant]
     Active Substance: EXENATIDE
     Dosage: 5 MG, UNK

REACTIONS (5)
  - Somogyi phenomenon [Recovered/Resolved]
  - Hypersensitivity [Recovered/Resolved]
  - Weight increased [Unknown]
  - Blood glucose increased [Recovered/Resolved]
  - Intentional product misuse [Not Recovered/Not Resolved]
